FAERS Safety Report 8085550-1 (Version None)
Quarter: 2012Q1

REPORT INFORMATION
  Report Type: 
  Country: None (occurrence: None)
  Receive Date: 20120128
  Receipt Date: 20110421
  Transmission Date: 20120608
  Serious: No
  Sender: FDA-Public Use
  Company Number: US-ABBOTT-11P-163-0713368-00

PATIENT
  Sex: Female

DRUGS (5)
  1. ISOCORT [Concomitant]
     Indication: PRODUCT USED FOR UNKNOWN INDICATION
  2. BIRTH CONTROL [Concomitant]
     Indication: CONTRACEPTION
  3. PENTASA [Concomitant]
     Indication: PRODUCT USED FOR UNKNOWN INDICATION
  4. TOPROL-XL [Concomitant]
     Indication: TACHYCARDIA
  5. HUMIRA [Suspect]
     Indication: CROHN'S DISEASE
     Route: 058
     Dates: start: 20110221

REACTIONS (4)
  - INCREASED TENDENCY TO BRUISE [None]
  - FATIGUE [None]
  - BLOOD IRON DECREASED [None]
  - MOOD SWINGS [None]
